FAERS Safety Report 12014677 (Version 2)
Quarter: 2016Q4

REPORT INFORMATION
  Report Type: Spontaneous
  Country: FR (occurrence: FR)
  Receive Date: 20160205
  Receipt Date: 20161004
  Transmission Date: 20170206
  Serious: Yes (Congenital Anomaly, Other)
  Sender: FDA-Public Use
  Company Number: FR-BAXTER-2016BAX004564

PATIENT
  Sex: Female
  Weight: 80 kg

DRUGS (12)
  1. ACTONEL [Suspect]
     Active Substance: RISEDRONATE SODIUM
     Indication: EXPOSURE DURING PREGNANCY
     Route: 064
     Dates: start: 20150604, end: 20150729
  2. CALCIDOSE [Suspect]
     Active Substance: CALCIUM CARBONATE
     Indication: EXPOSURE DURING PREGNANCY
     Route: 064
     Dates: start: 20150604
  3. METHYLPREDNISOLONE. [Suspect]
     Active Substance: METHYLPREDNISOLONE
     Indication: EXPOSURE DURING PREGNANCY
     Route: 064
     Dates: start: 20150525
  4. RIFINAH [Suspect]
     Active Substance: ISONIAZID\RIFAMPIN
     Indication: EXPOSURE DURING PREGNANCY
     Dosage: 2 TABS
     Route: 064
     Dates: start: 20150524, end: 20151008
  5. KARDEGIC [Suspect]
     Active Substance: ASPIRIN LYSINE
     Indication: EXPOSURE DURING PREGNANCY
     Route: 064
     Dates: start: 20150729
  6. UROMITEXAN 400 MG, COMPRIM? PELLICUL? S?CABLE [Suspect]
     Active Substance: MESNA
     Indication: EXPOSURE DURING PREGNANCY
     Route: 064
  7. ENDOXAN 1000 MG, POUDRE POUR SOLUTION INJECTABLE [Suspect]
     Active Substance: CYCLOPHOSPHAMIDE
     Indication: EXPOSURE DURING PREGNANCY
     Route: 064
     Dates: start: 20150630
  8. ENDOXAN 1000 MG, POUDRE POUR SOLUTION INJECTABLE [Suspect]
     Active Substance: CYCLOPHOSPHAMIDE
     Indication: BEHCET^S SYNDROME
     Dosage: FIRST COURSE
     Route: 064
     Dates: start: 20150601, end: 20150630
  9. ONDANSETRON [Suspect]
     Active Substance: ONDANSETRON
     Indication: EXPOSURE DURING PREGNANCY
     Route: 064
  10. LANTUS [Suspect]
     Active Substance: INSULIN GLARGINE
     Indication: EXPOSURE DURING PREGNANCY
     Route: 064
     Dates: start: 20150729
  11. PREDNISONE. [Suspect]
     Active Substance: PREDNISONE
     Indication: EXPOSURE DURING PREGNANCY
     Route: 064
     Dates: start: 20150525
  12. DIFFU K [Suspect]
     Active Substance: POTASSIUM CHLORIDE
     Indication: EXPOSURE DURING PREGNANCY
     Route: 064
     Dates: start: 20150604

REACTIONS (6)
  - Exposure during pregnancy [Unknown]
  - Foetal exposure during pregnancy [Not Recovered/Not Resolved]
  - Hepatic calcification [Not Recovered/Not Resolved]
  - Limb reduction defect [Not Recovered/Not Resolved]
  - Congenital hand malformation [Not Recovered/Not Resolved]
  - Congenital nose malformation [Not Recovered/Not Resolved]

NARRATIVE: CASE EVENT DATE: 2015
